FAERS Safety Report 6906530-2 (Version None)
Quarter: 2010Q3

REPORT INFORMATION
  Report Type: 
  Country: None (occurrence: None)
  Receive Date: 20100804
  Receipt Date: 20100719
  Transmission Date: 20110219
  Serious: Yes (Other)
  Sender: FDA-Public Use
  Company Number: DE-BAYER-200939733GPV

PATIENT
  Age: 39 Year
  Sex: Female

DRUGS (1)
  1. MIRENA [Suspect]
     Indication: PRODUCT USED FOR UNKNOWN INDICATION
     Route: 015
     Dates: start: 20090804, end: 20091112

REACTIONS (3)
  - DEVICE DISLOCATION [None]
  - PRE-ECLAMPSIA [None]
  - PREGNANCY WITH CONTRACEPTIVE DEVICE [None]
